FAERS Safety Report 6036769-2 (Version None)
Quarter: 2009Q1

REPORT INFORMATION
  Report Type: 
  Country: None (occurrence: None)
  Receive Date: 20090114
  Receipt Date: 20090105
  Transmission Date: 20090719
  Serious: Yes (Death, Other)
  Sender: FDA-Public Use
  Company Number: BR-JNJFOC-20081100650

PATIENT
  Sex: Male

DRUGS (1)
  1. ORTHOCLONE [Suspect]
     Indication: TRANSPLANT REJECTION
     Dates: start: 20061114, end: 20061115

REACTIONS (9)
  - ASTHENIA [None]
  - BRAIN DEATH [None]
  - CONVULSION [None]
  - DIARRHOEA [None]
  - DIZZINESS [None]
  - FALL [None]
  - HAEMORRHAGIC CEREBRAL INFARCTION [None]
  - HEAD INJURY [None]
  - PYREXIA [None]
